FAERS Safety Report 23511935 (Version 1)
Quarter: 2024Q1

REPORT INFORMATION
  Report Type: Spontaneous
  Country: SI (occurrence: SI)
  Receive Date: 20240212
  Receipt Date: 20240212
  Transmission Date: 20240410
  Serious: Yes (Life-Threatening)
  Sender: FDA-Public Use
  Company Number: SI-BAUSCH-BL-2024-001984

PATIENT
  Age: 42 Year
  Sex: Male

DRUGS (26)
  1. LORAZEPAM [Suspect]
     Active Substance: LORAZEPAM
     Indication: Restlessness
     Route: 065
     Dates: start: 2021
  2. LORAZEPAM [Suspect]
     Active Substance: LORAZEPAM
     Dosage: AS NEEDED
     Route: 065
     Dates: start: 2021
  3. DEXAMETHASONE [Suspect]
     Active Substance: DEXAMETHASONE
     Indication: Restlessness
     Dosage: IN COMBINED VOLUME OF 48 ML OF SALINE
     Route: 065
     Dates: start: 2021
  4. METAMIZOLE [Suspect]
     Active Substance: METAMIZOLE
     Indication: Neck pain
     Dosage: METAMIZO STADA
     Route: 065
     Dates: start: 2021, end: 2021
  5. METAMIZOLE [Suspect]
     Active Substance: METAMIZOLE
     Route: 065
     Dates: start: 2021
  6. NAPROXEN [Suspect]
     Active Substance: NAPROXEN
     Indication: Neck pain
     Dosage: NALGESIN S UP TO 4 TIMES/DAY AS NEEDED
     Route: 065
     Dates: start: 2021
  7. FENTANYL [Suspect]
     Active Substance: FENTANYL\FENTANYL CITRATE
     Indication: Neck pain
     Dosage: EPUFEN PATCH
     Route: 065
     Dates: start: 2021
  8. MORPHINE [Suspect]
     Active Substance: MORPHINE
     Indication: Neck pain
     Dosage: PILLS, AS NEEDED
     Route: 065
     Dates: start: 2021, end: 2021
  9. CLOMETHIAZOLE [Suspect]
     Active Substance: CLOMETHIAZOLE
     Indication: Restlessness
     Dosage: DISTRANEURIN, ADDITIONALLY AS NEEDED
     Route: 065
     Dates: start: 2021, end: 2021
  10. CLOMETHIAZOLE [Suspect]
     Active Substance: CLOMETHIAZOLE
     Route: 065
     Dates: start: 2021
  11. QUETIAPINE [Suspect]
     Active Substance: QUETIAPINE
     Indication: Sleep disorder
     Dosage: KVENTIAX, IN THE EVENING
     Route: 065
     Dates: start: 2021, end: 2021
  12. QUETIAPINE [Suspect]
     Active Substance: QUETIAPINE
     Route: 065
     Dates: start: 2021, end: 2021
  13. QUETIAPINE [Suspect]
     Active Substance: QUETIAPINE
     Dosage: AS NEEDED
     Route: 065
     Dates: start: 2021, end: 2021
  14. QUETIAPINE [Suspect]
     Active Substance: QUETIAPINE
     Dosage: INCREASED
     Route: 065
     Dates: start: 2021
  15. MORPHINE [Suspect]
     Active Substance: MORPHINE
     Indication: Neck pain
     Route: 058
     Dates: start: 2021, end: 2021
  16. MORPHINE [Suspect]
     Active Substance: MORPHINE
     Route: 058
     Dates: start: 2021, end: 2021
  17. MORPHINE [Suspect]
     Active Substance: MORPHINE
     Dosage: AS NEEDED
     Route: 058
     Dates: start: 2021
  18. MIDAZOLAM [Suspect]
     Active Substance: MIDAZOLAM
     Indication: Restlessness
     Route: 058
     Dates: start: 2021, end: 2021
  19. MIDAZOLAM [Suspect]
     Active Substance: MIDAZOLAM
     Route: 065
     Dates: start: 2021, end: 2021
  20. MIDAZOLAM [Suspect]
     Active Substance: MIDAZOLAM
     Route: 058
     Dates: start: 2021, end: 2021
  21. MIDAZOLAM [Suspect]
     Active Substance: MIDAZOLAM
     Dosage: UP TO 5 TIMES/DAY, INCREASED
     Route: 065
     Dates: start: 2021
  22. HALOPERIDOL [Suspect]
     Active Substance: HALOPERIDOL
     Indication: Restlessness
     Route: 065
     Dates: start: 2021, end: 2021
  23. HALOPERIDOL [Suspect]
     Active Substance: HALOPERIDOL
     Route: 065
     Dates: start: 2021, end: 2021
  24. HALOPERIDOL [Suspect]
     Active Substance: HALOPERIDOL
     Dosage: UP TO 3 TIMES/DAY
     Route: 065
     Dates: start: 2021
  25. CISPLATIN [Concomitant]
     Active Substance: CISPLATIN
     Indication: Squamous cell carcinoma
     Dates: start: 2021, end: 2021
  26. SODIUM CHLORIDE [Concomitant]
     Active Substance: SODIUM CHLORIDE
     Indication: Product used for unknown indication
     Dosage: 2 ML/H FLOW RATE
     Dates: start: 2021

REACTIONS (1)
  - Therapy non-responder [Unknown]

NARRATIVE: CASE EVENT DATE: 20210101
